FAERS Safety Report 25525995 (Version 2)
Quarter: 2025Q3

REPORT INFORMATION
  Report Type: Spontaneous
  Country: US (occurrence: US)
  Receive Date: 20250707
  Receipt Date: 20250801
  Transmission Date: 20251021
  Serious: No
  Sender: MYLAN
  Company Number: US-MYLANLABS-2025M1054403

PATIENT

DRUGS (4)
  1. EPINEPHRINE [Suspect]
     Active Substance: EPINEPHRINE
     Indication: Product used for unknown indication
  2. EPINEPHRINE [Suspect]
     Active Substance: EPINEPHRINE
     Route: 065
  3. EPINEPHRINE [Suspect]
     Active Substance: EPINEPHRINE
     Route: 065
  4. EPINEPHRINE [Suspect]
     Active Substance: EPINEPHRINE

REACTIONS (2)
  - Liquid product physical issue [Unknown]
  - Product quality issue [Unknown]
